FAERS Safety Report 9148378 (Version 2)
Quarter: 2013Q1

REPORT INFORMATION
  Report Type: Spontaneous
  Country: KR (occurrence: None)
  Receive Date: 20130220
  Receipt Date: 20130322
  Transmission Date: 20140127
  Serious: Yes (Death, Hospitalization)
  Sender: FDA-Public Use
  Company Number: JP-2013-10289

PATIENT
  Age: 68 Year
  Sex: Female

DRUGS (8)
  1. OPC-13013 [Suspect]
     Indication: CORONARY ARTERY DISEASE
     Route: 048
     Dates: end: 20100618
  2. OPC-13013 [Suspect]
     Indication: CAROTID ARTERY STENT INSERTION
     Route: 048
     Dates: end: 20100618
  3. OPC-13013 [Suspect]
     Indication: POST PROCEDURAL COMPLICATION
     Route: 048
     Dates: end: 20100618
  4. ASPIRIN [Suspect]
     Indication: CORONARY ARTERY DISEASE
     Route: 048
  5. ASPIRIN [Suspect]
     Indication: CORONARY ARTERIAL STENT INSERTION
     Route: 048
  6. CLOPIDOGREL (CLOPIDOGREL) [Suspect]
     Indication: CORONARY ARTERY DISEASE
     Route: 048
  7. CLOPIDOGREL (CLOPIDOGREL) [Suspect]
     Indication: CORONARY ARTERIAL STENT INSERTION
     Route: 048
  8. CLOPIDOGREL (CLOPIDOGREL) [Suspect]
     Indication: POST PROCEDURAL COMPLICATION
     Route: 048

REACTIONS (7)
  - Haemorrhagic cerebral infarction [None]
  - Colitis ischaemic [None]
  - Multi-organ disorder [None]
  - Coronary artery disease [None]
  - Asthenia [None]
  - Dyspnoea [None]
  - Atrial flutter [None]
